FAERS Safety Report 17468927 (Version 1)
Quarter: 2020Q1

REPORT INFORMATION
  Report Type: Report from Study
  Country: US (occurrence: US)
  Receive Date: 20200227
  Receipt Date: 20200227
  Transmission Date: 20200409
  Serious: No
  Sender: FDA-Public Use
  Company Number: US-AEGERION PHARMACEUTICAL, INC-AEGR004543

PATIENT
  Sex: Female
  Weight: 72.11 kg

DRUGS (1)
  1. MYALEPT [Suspect]
     Active Substance: METRELEPTIN
     Indication: CONGENITAL GENERALISED LIPODYSTROPHY
     Dosage: 6.25 MG, QD
     Route: 058

REACTIONS (3)
  - Blood urine present [Not Recovered/Not Resolved]
  - Flatulence [Recovered/Resolved]
  - Lactose intolerance [Recovered/Resolved]

NARRATIVE: CASE EVENT DATE: 2019
